FAERS Safety Report 15019342 (Version 2)
Quarter: 2018Q2

REPORT INFORMATION
  Report Type: Spontaneous
  Country: ES (occurrence: ES)
  Receive Date: 20180617
  Receipt Date: 20180617
  Transmission Date: 20180711
  Serious: Yes (Hospitalization, Other)
  Sender: FDA-Public Use
  Company Number: PHHO2018ES006795

PATIENT
  Age: 70 Year
  Sex: Female
  Weight: 77.4 kg

DRUGS (5)
  1. CICLOSPORIN [Suspect]
     Active Substance: CYCLOSPORINE
     Indication: APLASTIC ANAEMIA
     Dosage: 212 MG, Q12H
     Route: 048
     Dates: start: 20171226, end: 20180121
  2. CICLOSPORIN [Suspect]
     Active Substance: CYCLOSPORINE
     Dosage: 200 MG, Q12H
     Route: 065
     Dates: start: 20180212, end: 20180324
  3. ELTROMBOPAG [Suspect]
     Active Substance: ELTROMBOPAG
     Indication: PRODUCT USED FOR UNKNOWN INDICATION
     Dosage: 125 MG, Q12H
     Route: 065
     Dates: start: 20180324, end: 20180324
  4. ELTROMBOPAG [Suspect]
     Active Substance: ELTROMBOPAG
     Dosage: 150 MG, Q24H
     Route: 065
     Dates: start: 20180327, end: 20180416
  5. CICLOSPORIN [Suspect]
     Active Substance: CYCLOSPORINE
     Dosage: 200 MG, Q12H
     Route: 065
     Dates: start: 20180324, end: 20180416

REACTIONS (7)
  - Febrile neutropenia [Not Recovered/Not Resolved]
  - Febrile neutropenia [Recovered/Resolved]
  - Pneumonia [Unknown]
  - Urosepsis [Recovered/Resolved]
  - Myalgia [Unknown]
  - Product use in unapproved indication [Unknown]
  - Enterobacter infection [Unknown]

NARRATIVE: CASE EVENT DATE: 20180121
